FAERS Safety Report 21306503 (Version 1)
Quarter: 2022Q3

REPORT INFORMATION
  Report Type: Spontaneous
  Country: US (occurrence: US)
  Receive Date: 20220908
  Receipt Date: 20220908
  Transmission Date: 20221027
  Serious: No
  Sender: FDA-Public Use
  Company Number: US-PERRIGO-22US004569

PATIENT
  Age: 82 Year
  Sex: Female
  Weight: 81.633 kg

DRUGS (11)
  1. MINOXIDIL [Suspect]
     Active Substance: MINOXIDIL
     Indication: Alopecia
     Dosage: 1 ML, BID
     Route: 061
     Dates: start: 202109, end: 202111
  2. LEVOTHYROXINE [Concomitant]
     Active Substance: LEVOTHYROXINE
     Indication: Hypothyroidism
     Dosage: UNK
     Route: 065
  3. VITAMINS NOS [Concomitant]
     Active Substance: VITAMINS
     Indication: Supplementation therapy
     Dosage: UNK
     Route: 065
  4. VERAPAMIL [Concomitant]
     Active Substance: VERAPAMIL HYDROCHLORIDE
     Indication: Hypertension
     Dosage: UNK
     Route: 065
  5. OXYBUTYNIN [Concomitant]
     Active Substance: OXYBUTYNIN
     Indication: Product used for unknown indication
     Dosage: UNK
     Route: 065
  6. ZANTAC [Concomitant]
     Active Substance: RANITIDINE HYDROCHLORIDE
     Indication: Product used for unknown indication
     Dosage: UNK
     Route: 065
  7. FUROSEMIDE [Concomitant]
     Active Substance: FUROSEMIDE
     Indication: Fluid retention
     Dosage: UNK
     Route: 065
  8. OXYCODONE [Concomitant]
     Active Substance: OXYCODONE
     Indication: Headache
     Dosage: UNK
     Route: 065
  9. TEMAZEPAM [Concomitant]
     Active Substance: TEMAZEPAM
     Indication: Sleep disorder
     Dosage: UNK
     Route: 065
  10. METOPROLOL [Concomitant]
     Active Substance: METOPROLOL
     Indication: Hypertension
     Dosage: UNK
     Route: 065
  11. ELIQUIS [Concomitant]
     Active Substance: APIXABAN
     Indication: Product used for unknown indication
     Dosage: UNK
     Route: 065

REACTIONS (3)
  - Headache [Recovering/Resolving]
  - Application site pruritus [Recovering/Resolving]
  - Application site pain [Recovering/Resolving]

NARRATIVE: CASE EVENT DATE: 20211001
